FAERS Safety Report 5569007-5 (Version None)
Quarter: 2007Q4

REPORT INFORMATION
  Report Type: 
  Country: None (occurrence: None)
  Receive Date: 20071220
  Receipt Date: 20070517
  Transmission Date: 20080405
  Serious: No
  Sender: FDA-Public Use
  Company Number: A0650678A

PATIENT
  Age: 76 Year
  Sex: Male

DRUGS (7)
  1. AVODART [Suspect]
     Dosage: .5MG PER DAY
     Route: 048
     Dates: start: 20070504
  2. COUMADIN [Concomitant]
  3. AMBIEN [Concomitant]
  4. XANAX [Concomitant]
  5. DIGOXIN [Concomitant]
  6. SYNTHROID [Concomitant]
  7. FLOMAX [Concomitant]

REACTIONS (1)
  - INSOMNIA [None]
